FAERS Safety Report 5359315-5 (Version None)
Quarter: 2007Q2

REPORT INFORMATION
  Report Type: 
  Country: None (occurrence: None)
  Receive Date: 20070530
  Receipt Date: 20070329
  Transmission Date: 20071010
  Serious: No
  Sender: FDA-Public Use
  Company Number: 2007PV032667

PATIENT
  Age: 79 Year
  Sex: Female
  Weight: 92.9874 kg

DRUGS (6)
  1. BYETTA [Suspect]
     Indication: DIABETES MELLITUS NON-INSULIN-DEPENDENT
     Dosage: SEE IMAGE
     Route: 058
     Dates: start: 20060101
  2. BYETTA [Suspect]
     Indication: DIABETES MELLITUS NON-INSULIN-DEPENDENT
     Dosage: SEE IMAGE
     Route: 058
     Dates: start: 20060101
  3. AMARYL [Concomitant]
  4. ASPIRIN [Concomitant]
  5. CADUET [Concomitant]
  6. DIOVAN HCT [Concomitant]

REACTIONS (5)
  - ABDOMINAL DISTENSION [None]
  - DECREASED APPETITE [None]
  - HYPERHIDROSIS [None]
  - INJECTION SITE BRUISING [None]
  - WEIGHT INCREASED [None]
